FAERS Safety Report 8849193 (Version 2)
Quarter: 2013Q2

REPORT INFORMATION
  Report Type: Spontaneous
  Country: US (occurrence: None)
  Receive Date: 20120426
  Receipt Date: 20121031
  Transmission Date: 20140414
  Serious: No
  Sender: FDA-Public Use
  Company Number: PHEH2011US010812

PATIENT
  Age: 67 Year
  Sex: Female
  Weight: 68 kg

DRUGS (24)
  1. GILENYA [Suspect]
     Indication: MULTIPLE SCLEROSIS
     Route: 048
     Dates: start: 201110
  2. PROCARDIA XL (NIFEDIPINE) TABLET [Concomitant]
  3. NADOLOL (NADOLOL) TABLET [Concomitant]
  4. CLARINEX (LORATADINE, PSEUDOEPHEDRINE SULFATE) TABLET [Concomitant]
  5. FLOMAX ^BOEHRINGER INGELHEIM^ (TAMSULOSIN HYDROCHLORIDE) CAPSULE [Concomitant]
  6. BUMETANIDE (BUMETANIDE) TABLET [Concomitant]
  7. SYNTHROID (LEVOTHYROXINE SODIUM) TABLET [Concomitant]
  8. NEXIUM /01479302/ (ESOMEPRAZOLE MAGNESIUM) CAPSULE [Concomitant]
  9. IMIPRAMINE HYDROCHLORIDE (IMIPRAMINE HYDROCHLORIDE) TABLET [Concomitant]
  10. PROVIGIL (MODAFINIL) TABLET [Concomitant]
  11. MOBIC (MELOXICAM) SUSPENSION [Concomitant]
  12. XANAX (ALPRAZOLAM) TABLET [Concomitant]
  13. TOPAMAX (TOPIRAMATE) TABLET [Concomitant]
  14. LISINOPRIL (LISINOPRIL) TABLET [Concomitant]
  15. DETROL (TOLTERODINE L-TARTRATE) CAPSULE [Concomitant]
  16. POTASSIUM (POTASSIUM) TABLET [Concomitant]
  17. NITROFURANTOIN (NITROFURANTOIN) CAPSULE [Concomitant]
  18. ARICEPT (DONEPEZIL HYDROCHLORIDE) TABLET [Concomitant]
  19. LYRICA (PREGABALIN) CAPSULE [Concomitant]
  20. HYDROCODONE W/APAP (HYDROCODONE, PARACETAMOL) TABLET [Concomitant]
  21. CALCIUM WITH VITAMIN D (CALCIUM PHOSPHATE, CALCIUM SODIUM LACTATE, ERGOCALCIFEROL) TABLET [Concomitant]
  22. VITAMIN D3 (COLECALCIFEROL) TABLET [Concomitant]
  23. FISH OIL (FISH OIL) CAPSULE [Concomitant]
  24. FLAXSEED OIL (LINUM USITATISSIMUM SEED OIL) CAPSULE [Concomitant]

REACTIONS (5)
  - Decreased appetite [None]
  - Dysphagia [None]
  - Choking [None]
  - Alopecia [None]
  - Cough [None]
